FAERS Safety Report 6655629-7 (Version None)
Quarter: 2010Q1

REPORT INFORMATION
  Report Type: 
  Country: None (occurrence: None)
  Receive Date: 20100329
  Receipt Date: 20100317
  Transmission Date: 20100710
  Serious: Yes (Hospitalization)
  Sender: FDA-Public Use
  Company Number: FR-PFIZER INC-2010003542

PATIENT
  Age: 31 Year
  Sex: Female

DRUGS (12)
  1. DOXORUBICIN HCL [Suspect]
     Indication: DIFFUSE LARGE B-CELL LYMPHOMA
     Route: 042
  2. DOXORUBICIN HCL [Suspect]
     Dosage: 50 MG/M2, CYCLIC, ON DAY2
     Route: 042
     Dates: start: 20080825
  3. METHOTREXATE [Suspect]
     Dosage: UNK
  4. METHOTREXATE [Suspect]
     Dosage: 15 MG DAILY
     Dates: start: 20080825
  5. MABTHERA [Suspect]
     Indication: DIFFUSE LARGE B-CELL LYMPHOMA
     Dosage: UNK
     Route: 042
  6. MABTHERA [Suspect]
     Dosage: 375 MG/M2, CYCLIC, ON DAY1
     Route: 042
     Dates: start: 20080825
  7. ONCOVIN [Suspect]
     Indication: DIFFUSE LARGE B-CELL LYMPHOMA
     Dosage: UNK
     Route: 042
  8. ONCOVIN [Suspect]
     Dosage: 2 MG, CYCLIC, ON DAY2
     Route: 042
     Dates: start: 20080825
  9. CYCLOPHOSPHAMIDE [Suspect]
     Indication: DIFFUSE LARGE B-CELL LYMPHOMA
     Route: 042
  10. CYCLOPHOSPHAMIDE [Suspect]
     Dosage: 750 MG/M2, CYCLIC, ON DAY 2
     Route: 042
     Dates: start: 20080825
  11. SOLU-MEDROL [Concomitant]
     Dosage: 60 MG, CYCLIC, ON DAY1 AND DAY2
  12. SOLUPRED [Concomitant]
     Dosage: 60 MG, CYCLIC, FROM DAY2 TO DAY5

REACTIONS (1)
  - APLASIA [None]
